FAERS Safety Report 13447162 (Version 5)
Quarter: 2020Q2

REPORT INFORMATION
  Report Type: Report from Study
  Country: CO (occurrence: CO)
  Receive Date: 20170417
  Receipt Date: 20200504
  Transmission Date: 20200713
  Serious: Yes (Death, Hospitalization, Other)
  Sender: FDA-Public Use
  Company Number: PHHY2016CO173860

PATIENT
  Age: 63 Year
  Sex: Female
  Weight: 35 kg

DRUGS (5)
  1. SANDOSTATIN LAR DEPOT [Suspect]
     Active Substance: OCTREOTIDE ACETATE
     Dosage: 30 MG 2 AMPOULES MONTHLY
     Route: 030
     Dates: end: 201702
  2. AFINITOR [Suspect]
     Active Substance: EVEROLIMUS
     Indication: NEUROENDOCRINE TUMOUR
     Dosage: 10 MG, QD
     Route: 048
     Dates: start: 20161103, end: 20161209
  3. CHOLESTYRAMINE. [Concomitant]
     Active Substance: CHOLESTYRAMINE
     Indication: PRODUCT USED FOR UNKNOWN INDICATION
     Dosage: UNK
     Route: 065
  4. SANDOSTATIN LAR DEPOT [Suspect]
     Active Substance: OCTREOTIDE ACETATE
     Indication: NEUROENDOCRINE TUMOUR
     Dosage: 30 MG, QMO
     Route: 030
     Dates: start: 20121215
  5. AFINITOR [Suspect]
     Active Substance: EVEROLIMUS
     Dosage: 0.5 DF (HALF TABLET OF 10 MG A DAY)), QD
     Route: 048
     Dates: end: 20170326

REACTIONS (25)
  - Blood potassium decreased [Unknown]
  - Dehydration [Unknown]
  - Neuroendocrine tumour [Unknown]
  - Decreased appetite [Unknown]
  - Abdominal pain upper [Unknown]
  - Wrong technique in product usage process [Unknown]
  - Herpes virus infection [Unknown]
  - Pruritus [Unknown]
  - Malnutrition [Unknown]
  - Decreased immune responsiveness [Unknown]
  - Psychiatric symptom [Unknown]
  - Weight decreased [Unknown]
  - Vomiting [Unknown]
  - Off label use [Unknown]
  - Respiratory arrest [Fatal]
  - Rash [Unknown]
  - Dysgeusia [Unknown]
  - Hypotension [Unknown]
  - Diarrhoea [Unknown]
  - Urinary tract infection [Unknown]
  - Nausea [Unknown]
  - Body mass index decreased [Unknown]
  - Dyspnoea [Unknown]
  - Cough [Unknown]
  - Drug intolerance [Unknown]

NARRATIVE: CASE EVENT DATE: 20170418
